FAERS Safety Report 15880943 (Version 1)
Quarter: 2019Q1

REPORT INFORMATION
  Report Type: Spontaneous
  Country: CA (occurrence: CA)
  Receive Date: 20190128
  Receipt Date: 20190128
  Transmission Date: 20190417
  Serious: Yes (Other)
  Sender: FDA-Public Use
  Company Number: CA-009507513-1901CAN008603

PATIENT
  Age: 72 Year
  Sex: Male

DRUGS (1)
  1. KEYTRUDA [Suspect]
     Active Substance: PEMBROLIZUMAB
     Indication: NON-SMALL CELL LUNG CANCER
     Dosage: INJECTION
     Route: 065
     Dates: start: 20181029, end: 20181205

REACTIONS (2)
  - Haematochezia [Unknown]
  - Colitis [Unknown]

NARRATIVE: CASE EVENT DATE: 201812
